FAERS Safety Report 8776972 (Version 1)
Quarter: 2012Q4

REPORT INFORMATION
  Report Type: 
  Country: IT (occurrence: IT)
  Receive Date: 20120911
  Receipt Date: 20120911
  Transmission Date: 20130627
  Serious: Yes (Other)
  Sender: FDA-Public Use
  Company Number: IT-GLAXOSMITHKLINE-B0776574A

PATIENT
  Age: 71 Year
  Sex: Male

DRUGS (6)
  1. AVODART [Suspect]
     Indication: BENIGN PROSTATIC HYPERPLASIA
     Dosage: .5MG Per day
     Route: 065
     Dates: start: 20051012, end: 20120120
  2. CRESTOR [Concomitant]
     Dosage: 20MG per day
  3. CARDIOASPIRIN [Concomitant]
     Dosage: 100MG per day
  4. KANRENOL [Concomitant]
     Dosage: 50MG per day
  5. ZOFENOPRIL + HYDROCHLOROTHIAZIDE [Concomitant]
     Dosage: 1TAB per day
  6. LERCANIDIPINE HYDROCHLORIDE [Concomitant]

REACTIONS (6)
  - Hypertensive crisis [Recovered/Resolved]
  - Erythema [Recovered/Resolved]
  - Tachycardia [Recovered/Resolved]
  - Nausea [Recovered/Resolved]
  - Vomiting [Unknown]
  - Product quality issue [Unknown]
